FAERS Safety Report 6657444-7 (Version None)
Quarter: 2010Q1

REPORT INFORMATION
  Report Type: 
  Country: None (occurrence: None)
  Receive Date: 20100330
  Receipt Date: 20100318
  Transmission Date: 20100710
  Serious: Yes (Other)
  Sender: FDA-Public Use
  Company Number: FI-PFIZER INC-2010036535

PATIENT
  Age: 16 Month
  Sex: Female

DRUGS (3)
  1. ATARAX [Suspect]
     Dosage: UNK
  2. AERIUS [Suspect]
     Indication: NASAL CONGESTION
     Dosage: UNK
     Dates: start: 20100303
  3. AERIUS [Suspect]
     Indication: HYPERSENSITIVITY

REACTIONS (1)
  - PSYCHOMOTOR HYPERACTIVITY [None]
